FAERS Safety Report 9150706 (Version 1)
Quarter: 2013Q1

REPORT INFORMATION
  Report Type: Spontaneous
  Country: US (occurrence: None)
  Receive Date: 20130201
  Receipt Date: 20130201
  Transmission Date: 20140127
  Serious: Yes (Other)
  Sender: FDA-Public Use
  Company Number: 2013-01320

PATIENT
  Sex: Male

DRUGS (1)
  1. PROMETHAZINE [Suspect]
     Indication: VOMITING

REACTIONS (6)
  - Hallucination, visual [None]
  - Hallucination, tactile [None]
  - Major depression [None]
  - Social phobia [None]
  - Generalised anxiety disorder [None]
  - Migraine [None]
